FAERS Safety Report 21247062 (Version 5)
Quarter: 2022Q3

REPORT INFORMATION
  Report Type: Report from Study
  Country: ES (occurrence: None)
  Receive Date: 20220824
  Receipt Date: 20220927
  Transmission Date: 20221027
  Serious: Yes (Hospitalization)
  Sender: FDA-Public Use
  Company Number: ES-ROCHE-3164491

PATIENT
  Age: 65 Year
  Sex: Female
  Weight: 82.5 kg

DRUGS (24)
  1. INVESTIGATIONAL PRODUCT [Suspect]
     Active Substance: INVESTIGATIONAL PRODUCT
     Indication: Colorectal cancer metastatic
     Dosage: START DATE OF MOST RECENT DOSE  (50 MG) OF STUDY DRUG (RO7122290) PRIOR TO AE/SAE: 16/AUG/2022 FROM
     Route: 042
     Dates: start: 20220816
  2. CIBISATAMAB [Suspect]
     Active Substance: CIBISATAMAB
     Indication: Colorectal cancer metastatic
     Dosage: START DATE OF MOST RECENT DOSE (60 MG) OF STUDY DRUG (RO6958688) PRIOR TO AE/SAE: 16/AUG/2022 FROM 4
     Route: 042
     Dates: start: 20220816
  3. OBINUTUZUMAB [Suspect]
     Active Substance: OBINUTUZUMAB
     Indication: Colorectal cancer metastatic
     Dosage: START DATE OF MOST RECENT DOSE 2000 MG OF OBINUTUZUMAB PRIOR TO AE/SAE: 08/AUG/2022 FROM 12:35 PM TO
     Route: 042
     Dates: start: 20220808
  4. DEXAMETHASONE [Concomitant]
     Active Substance: DEXAMETHASONE
     Indication: Premedication
     Dosage: CORTICOSTEROID PREMEDICATIONS AND POST-INFUSION
     Route: 042
     Dates: start: 20220808, end: 20220808
  5. DEXCHLORPHENIRAMINE [Concomitant]
     Active Substance: DEXCHLORPHENIRAMINE
     Indication: Premedication
     Dosage: NON-STEROIDAL PREMEDICATIONS
     Route: 042
     Dates: start: 20220808, end: 20220808
  6. ACETAMINOPHEN [Concomitant]
     Active Substance: ACETAMINOPHEN
     Indication: Premedication
     Dosage: NON-STEROIDAL PREMEDICATIONS
     Route: 042
     Dates: start: 20220808, end: 20220808
  7. ACETAMINOPHEN [Concomitant]
     Active Substance: ACETAMINOPHEN
     Route: 048
     Dates: start: 202203
  8. ACETAMINOPHEN [Concomitant]
     Active Substance: ACETAMINOPHEN
     Dosage: NON-STEROIDAL PREMEDICATIONS
     Route: 042
     Dates: start: 20220816, end: 20220816
  9. ALLOPURINOL [Concomitant]
     Active Substance: ALLOPURINOL
     Indication: Hyperuricaemia
     Dosage: PREVIOUS AND CONCOMITANT MEDICATIONS
     Route: 048
     Dates: start: 2010
  10. CALCIFEDIOL [Concomitant]
     Active Substance: CALCIFEDIOL
     Indication: Prophylaxis
     Dosage: PREVIOUS AND CONCOMITANT MEDICATIONS
     Route: 048
     Dates: start: 2021
  11. DULOXETINE HYDROCHLORIDE [Concomitant]
     Active Substance: DULOXETINE HYDROCHLORIDE
     Indication: Depression
     Dosage: PREVIOUS AND CONCOMITANT MEDICATIONS
     Route: 048
     Dates: start: 2020
  12. EUTHYROX [Concomitant]
     Active Substance: LEVOTHYROXINE SODIUM
     Indication: Hypothyroidism
     Dosage: PREVIOUS AND CONCOMITANT MEDICATIONS
     Route: 048
     Dates: start: 202202
  13. LORAZEPAM [Concomitant]
     Active Substance: LORAZEPAM
     Indication: Insomnia
     Dosage: PREVIOUS AND CONCOMITANT MEDICATIONS
     Route: 048
     Dates: start: 2022
  14. METAMIZOLE [Concomitant]
     Active Substance: METAMIZOLE
     Indication: Prophylaxis
     Dosage: PREVIOUS AND CONCOMITANT MEDICATIONS
     Route: 048
     Dates: start: 2022
  15. PANTOPRAZOLE [Concomitant]
     Active Substance: PANTOPRAZOLE
     Indication: Gastrointestinal disorder prophylaxis
     Dosage: PREVIOUS AND CONCOMITANT MEDICATIONS
     Route: 048
     Dates: start: 2022
  16. HERBALS\PLANTAGO OVATA LEAF [Concomitant]
     Active Substance: HERBALS\PLANTAGO OVATA LEAF
     Indication: Constipation prophylaxis
     Dosage: PREVIOUS AND CONCOMITANT MEDICATIONS
     Route: 048
     Dates: start: 2022
  17. PYRIDOXINE [Concomitant]
     Active Substance: PYRIDOXINE
     Indication: Prophylaxis
     Dosage: PREVIOUS AND CONCOMITANT MEDICATIONS
     Route: 048
     Dates: start: 2022
  18. METHYLPREDNISOLONE [Concomitant]
     Active Substance: METHYLPREDNISOLONE
     Route: 042
     Dates: start: 20220816, end: 20220816
  19. METHYLPREDNISOLONE [Concomitant]
     Active Substance: METHYLPREDNISOLONE
     Route: 048
     Dates: start: 20220816, end: 20220816
  20. SODIUM CHLORIDE [Concomitant]
     Active Substance: SODIUM CHLORIDE
     Route: 042
     Dates: start: 20220816, end: 20220816
  21. METOCLOPRAMIDE [Concomitant]
     Active Substance: METOCLOPRAMIDE
     Route: 042
     Dates: start: 20220816, end: 20220816
  22. DEXKETOPROFEN [Concomitant]
     Active Substance: DEXKETOPROFEN
     Route: 042
     Dates: start: 20220816, end: 20220816
  23. DEXCHLORPHENIRAMINE [Concomitant]
     Active Substance: DEXCHLORPHENIRAMINE
     Route: 042
     Dates: start: 20220808, end: 20220808
  24. DEXCHLORPHENIRAMINE [Concomitant]
     Active Substance: DEXCHLORPHENIRAMINE
     Route: 042
     Dates: start: 20220816, end: 20220816

REACTIONS (1)
  - Cytokine release syndrome [Recovered/Resolved]

NARRATIVE: CASE EVENT DATE: 20220817
